FAERS Safety Report 17900552 (Version 1)
Quarter: 2020Q2

REPORT INFORMATION
  Report Type: Spontaneous
  Country: US (occurrence: US)
  Receive Date: 20200616
  Receipt Date: 20200616
  Transmission Date: 20200714
  Serious: No
  Sender: FDA-Public Use
  Company Number: US-BRISTOL-MYERS SQUIBB COMPANY-BMS-2020-045130

PATIENT
  Age: 43 Year
  Sex: Female

DRUGS (1)
  1. KENALOG-40 [Suspect]
     Active Substance: TRIAMCINOLONE ACETONIDE
     Indication: CARPAL TUNNEL SYNDROME
     Dosage: 1/2 CC
     Route: 042

REACTIONS (2)
  - Autonomic nervous system imbalance [Unknown]
  - Intentional product use issue [Unknown]
